FAERS Safety Report 15490319 (Version 1)
Quarter: 2018Q4

REPORT INFORMATION
  Report Type: Spontaneous
  Country: US (occurrence: US)
  Receive Date: 20181011
  Receipt Date: 20181011
  Transmission Date: 20190205
  Serious: No
  Sender: FDA-Public Use
  Company Number: US-009507513-1810USA002210

PATIENT
  Sex: Female

DRUGS (5)
  1. GANIRELIX ACETATE INJECTION [Suspect]
     Active Substance: GANIRELIX ACETATE
     Dosage: 250 MICROGRAM, FREQUENCY: AS DIRECTED
     Route: 058
     Dates: start: 20180325
  2. BIMATOPROST. [Concomitant]
     Active Substance: BIMATOPROST
  3. FOLLISTIM AQ [Suspect]
     Active Substance: FOLLITROPIN
     Indication: INFERTILITY FEMALE
     Dosage: STRENGTH: 900 IU/1.08 ML, DOSE: 225 U; FREQUENCY: AS DIRECTED
     Route: 058
     Dates: start: 20180927
  4. MENOPUR [Concomitant]
     Active Substance: FOLLITROPIN\LUTEINIZING HORMONE
  5. FOLLISTIM AQ [Suspect]
     Active Substance: FOLLITROPIN
     Indication: INFERTILITY FEMALE
     Dosage: STRENGTH: 600 IU/0.72 ML; DOSE: 225 DF, FREQUENCY: AS DIRECTED
     Route: 058

REACTIONS (1)
  - Adverse drug reaction [Not Recovered/Not Resolved]
